FAERS Safety Report 8595109-5 (Version None)
Quarter: 2012Q3

REPORT INFORMATION
  Report Type: 
  Country: None (occurrence: None)
  Receive Date: 20120807
  Receipt Date: 20120807
  Transmission Date: 20120928
  Serious: Yes (Other)
  Sender: FDA-Public Use
  Company Number: None

PATIENT
  Age: 70 Year
  Sex: Female
  Weight: 51.2565 kg

DRUGS (1)
  1. TERBINAFINE HCL [Suspect]
     Indication: ONYCHOMYCOSIS
     Dosage: 1 DAILY ORAL
     Route: 048
     Dates: start: 20120406, end: 20120524

REACTIONS (3)
  - NASOPHARYNGITIS [None]
  - AGEUSIA [None]
  - PAROSMIA [None]
